FAERS Safety Report 8228315-X (Version None)
Quarter: 2012Q1

REPORT INFORMATION
  Report Type: 
  Country: None (occurrence: None)
  Receive Date: 20120322
  Receipt Date: 20120316
  Transmission Date: 20120608
  Serious: Yes (Death)
  Sender: FDA-Public Use
  Company Number: US-GILEAD-2012-0051886

PATIENT
  Sex: Male

DRUGS (2)
  1. LETAIRIS [Suspect]
     Indication: PULMONARY HYPERTENSION
     Dosage: 10 MG,
     Route: 048
     Dates: start: 20110303
  2. LETAIRIS [Suspect]
     Indication: DRUG ABUSE

REACTIONS (1)
  - LUNG NEOPLASM MALIGNANT [None]
